FAERS Safety Report 13427225 (Version 2)
Quarter: 2017Q2

REPORT INFORMATION
  Report Type: Spontaneous
  Country: FR (occurrence: FR)
  Receive Date: 20170411
  Receipt Date: 20170626
  Transmission Date: 20170830
  Serious: Yes (Hospitalization, Other)
  Sender: FDA-Public Use
  Company Number: PHHY2017FR050264

PATIENT
  Age: 90 Year
  Sex: Female

DRUGS (3)
  1. REVOLADE [Suspect]
     Active Substance: ELTROMBOPAG
     Indication: IMMUNE THROMBOCYTOPENIC PURPURA
     Dosage: 50 MG, QOD, 3 TIMES PER WEEK
     Route: 048
     Dates: start: 201504
  2. REVOLADE [Suspect]
     Active Substance: ELTROMBOPAG
     Dosage: UNK
     Route: 065
     Dates: start: 20170330, end: 20170404
  3. EUPANTOL [Concomitant]
     Active Substance: PANTOPRAZOLE SODIUM
     Indication: PROPHYLAXIS AGAINST GASTROINTESTINAL ULCER
     Dosage: 20 MG, QD
     Route: 048
     Dates: start: 201611

REACTIONS (12)
  - Agitation [Unknown]
  - Lacrimal disorder [Unknown]
  - Ulcer [Recovered/Resolved]
  - Amnesia [Unknown]
  - Dementia [Recovered/Resolved]
  - Fear [Unknown]
  - Cognitive disorder [Not Recovered/Not Resolved]
  - Amnesia [Recovered/Resolved]
  - Panic attack [Unknown]
  - Dementia [Not Recovered/Not Resolved]
  - Panic attack [Recovered/Resolved]
  - Fear [Recovered/Resolved]

NARRATIVE: CASE EVENT DATE: 201604
